FAERS Safety Report 8197494 (Version 2)
Quarter: 2012Q4

REPORT INFORMATION
  Report Type: 
  Country: ES (occurrence: ES)
  Receive Date: 20111025
  Receipt Date: 20121129
  Transmission Date: 20130627
  Serious: Yes (Other)
  Sender: FDA-Public Use
  Company Number: ES-RANBAXY-2011R1-49669

PATIENT
  Age: 41 Year
  Sex: Female

DRUGS (1)
  1. NAPROXEN [Suspect]
     Indication: ALLERGY TEST
     Dosage: UNK
     Route: 048

REACTIONS (4)
  - Pruritus [Recovered/Resolved]
  - Cough [Recovered/Resolved]
  - Discomfort [Recovered/Resolved]
  - Anaphylactic reaction [Unknown]
